FAERS Safety Report 20847358 (Version 1)
Quarter: 2022Q2

REPORT INFORMATION
  Report Type: Spontaneous
  Country: US (occurrence: US)
  Receive Date: 20220519
  Receipt Date: 20220519
  Transmission Date: 20220721
  Serious: No
  Sender: FDA-Public Use
  Company Number: US-NEUROCRINE BIOSCIENCES INC.-2022NBI03153

PATIENT

DRUGS (1)
  1. INGREZZA [Suspect]
     Active Substance: VALBENAZINE
     Indication: Tardive dyskinesia
     Dosage: 60 MILLIGRAM, EVERY 8 HOURS TOTALING 180 MG
     Route: 048
     Dates: start: 20220421, end: 2022

REACTIONS (3)
  - Tardive dyskinesia [Unknown]
  - Overdose [Unknown]
  - Off label use [Unknown]
